FAERS Safety Report 6252025-1 (Version None)
Quarter: 2009Q2

REPORT INFORMATION
  Report Type: 
  Country: None (occurrence: None)
  Receive Date: 20090630
  Receipt Date: 20060203
  Transmission Date: 20091009
  Serious: Yes (Hospitalization)
  Sender: FDA-Public Use
  Company Number: US-ROCHE-638653

PATIENT
  Sex: Male

DRUGS (22)
  1. ENFUVIRTIDE [Suspect]
     Route: 065
     Dates: start: 20040213, end: 20060601
  2. ENFUVIRTIDE [Suspect]
     Route: 065
     Dates: start: 20060612, end: 20080814
  3. INVIRASE [Concomitant]
     Dates: start: 20040204, end: 20060601
  4. VIDEX EC [Concomitant]
     Dates: start: 20040204, end: 20060601
  5. ZIAGEN [Concomitant]
     Dates: start: 20040204, end: 20040922
  6. KALETRA [Concomitant]
     Dosage: DOSING AMOUNT : 3 TABLETS
     Dates: start: 20040213, end: 20060601
  7. SUSTIVA [Concomitant]
     Dates: start: 20040213, end: 20040922
  8. EPIVIR [Concomitant]
     Dates: start: 20060206, end: 20060601
  9. VIREAD [Concomitant]
     Dates: start: 20060206, end: 20060601
  10. NORVIR [Concomitant]
     Dates: start: 20060605
  11. NORVIR [Concomitant]
     Dates: start: 20060608, end: 20080814
  12. TRUVADA [Concomitant]
     Dates: start: 20060612
  13. PREZISTA [Concomitant]
     Dates: start: 20061128, end: 20070418
  14. PREZISTA [Concomitant]
     Dates: start: 20070713, end: 20080814
  15. ISENTRESS [Concomitant]
     Dates: start: 20070713, end: 20080814
  16. BACTRIM DS [Concomitant]
     Dates: start: 20010101, end: 20080814
  17. ZITHROMAX [Concomitant]
     Dates: start: 20020930, end: 20060101
  18. DIFLUCAN [Concomitant]
     Dates: start: 20030114, end: 20070101
  19. POSACONAZOLE [Concomitant]
     Dates: start: 20070311, end: 20070101
  20. POSACONAZOLE [Concomitant]
     Dates: start: 20080501, end: 20080101
  21. LEVAQUIN [Concomitant]
     Dates: start: 20070313, end: 20070101
  22. PENICILLIN [Concomitant]
     Dates: start: 20080206, end: 20080201

REACTIONS (2)
  - ODYNOPHAGIA [None]
  - RECTAL ULCER [None]
